FAERS Safety Report 7550062-8 (Version None)
Quarter: 2011Q2

REPORT INFORMATION
  Report Type: 
  Country: None (occurrence: None)
  Receive Date: 20110615
  Receipt Date: 20100630
  Transmission Date: 20111010
  Serious: No
  Sender: FDA-Public Use
  Company Number: US-TYCO HEALTHCARE/MALLINCKRODT-T201001557

PATIENT
  Sex: Male

DRUGS (3)
  1. HEPARIN [Concomitant]
     Dosage: 0.2 - 0.3 ML
     Route: 042
     Dates: start: 20100629, end: 20100629
  2. TECHNETIUM TC 99M GENERATOR [Concomitant]
     Indication: RADIOISOTOPE SCAN
     Dosage: UNK, SINGLE
     Dates: start: 20100629, end: 20100629
  3. ULTRATAG [Suspect]
     Indication: RADIOISOTOPE SCAN
     Dosage: UNK, SINGLE
     Route: 042
     Dates: start: 20100629, end: 20100629

REACTIONS (1)
  - DRUG INEFFECTIVE [None]
